FAERS Safety Report 20085469 (Version 1)
Quarter: 2021Q4

REPORT INFORMATION
  Report Type: Report from Study
  Country: US (occurrence: US)
  Receive Date: 20211118
  Receipt Date: 20211118
  Transmission Date: 20220303
  Serious: Yes (Other)
  Sender: FDA-Public Use
  Company Number: US-Ipsen Biopharmaceuticals, Inc.-2021-24086

PATIENT
  Age: 46 Year
  Sex: Female
  Weight: 102 kg

DRUGS (2)
  1. DYSPORT [Suspect]
     Active Substance: ABOBOTULINUMTOXINA
     Indication: Dystonia
     Dosage: 80 IU (UPPER TRAPEZIUS 1 INJECTION 40 IU, OCCIPITAL RIDGE MUSCLE 20 IU, POSTERIOR SCALIENS 20 IU)
     Route: 030
     Dates: start: 20201014, end: 20201014
  2. DYSPORT [Suspect]
     Active Substance: ABOBOTULINUMTOXINA
     Indication: Off label use

REACTIONS (5)
  - Intervertebral disc operation [Unknown]
  - Muscular weakness [Unknown]
  - Injection site pain [Unknown]
  - Muscle tightness [Unknown]
  - Off label use [Unknown]

NARRATIVE: CASE EVENT DATE: 20201001
